FAERS Safety Report 16595485 (Version 4)
Quarter: 2021Q2

REPORT INFORMATION
  Report Type: Report from Study
  Country: None (occurrence: NL)
  Receive Date: 20190719
  Receipt Date: 20210520
  Transmission Date: 20210716
  Serious: No
  Sender: FDA-Public Use
  Company Number: NL-ABBVIE-19K-114-2857156-00

PATIENT
  Sex: Female

DRUGS (4)
  1. DUODOPA [Suspect]
     Active Substance: CARBIDOPA\LEVODOPA
     Dosage: MD: 12.0 ML, CD: 2.6ML/H, ED: 1.8 ML
     Route: 050
  2. DUODOPA [Suspect]
     Active Substance: CARBIDOPA\LEVODOPA
     Dosage: MD: 12.0 ML, CD: 2.4 ML/HR, ED: 1.8 ML.?INCREASED WITH 0.1 ML/HR.
     Route: 050
  3. SINEMET [Concomitant]
     Active Substance: CARBIDOPA\LEVODOPA
     Indication: PRODUCT USED FOR UNKNOWN INDICATION
     Dosage: HALF TABLET OF 120
  4. DUODOPA [Suspect]
     Active Substance: CARBIDOPA\LEVODOPA
     Indication: PARKINSON^S DISEASE
     Dosage: MD 12.0, CD 2.3, ED 1.6
     Route: 050
     Dates: start: 20171127

REACTIONS (12)
  - Blood glucose abnormal [Not Recovered/Not Resolved]
  - Device difficult to use [Unknown]
  - Dementia [Not Recovered/Not Resolved]
  - On and off phenomenon [Not Recovered/Not Resolved]
  - Impaired quality of life [Unknown]
  - Memory impairment [Not Recovered/Not Resolved]
  - Tremor [Not Recovered/Not Resolved]
  - Diabetes mellitus [Not Recovered/Not Resolved]
  - Choking [Recovered/Resolved]
  - Decreased appetite [Recovered/Resolved]
  - Dyskinesia [Recovered/Resolved]
  - Gastrointestinal disorder [Recovered/Resolved]
